FAERS Safety Report 13756336 (Version 2)
Quarter: 2017Q3

REPORT INFORMATION
  Report Type: Spontaneous
  Country: US (occurrence: US)
  Receive Date: 20170714
  Receipt Date: 20170719
  Transmission Date: 20171127
  Serious: Yes (Other)
  Sender: FDA-Public Use
  Company Number: US-PFIZER INC-2017304532

PATIENT
  Age: 61 Year
  Sex: Female

DRUGS (1)
  1. NEURONTIN [Suspect]
     Active Substance: GABAPENTIN
     Dosage: 500 MG, UNK (2-3 TIMES A DAY)
     Route: 048

REACTIONS (23)
  - Histoplasmosis [Unknown]
  - Fatigue [Unknown]
  - Decubitus ulcer [Recovered/Resolved]
  - Muscular weakness [Unknown]
  - Malaise [Unknown]
  - Urinary tract infection [Unknown]
  - Gastric ulcer [Unknown]
  - Foot deformity [Unknown]
  - Balance disorder [Unknown]
  - Dermatitis herpetiformis [Unknown]
  - Oesophageal ulcer [Unknown]
  - Dyskinesia [Unknown]
  - Hepatic steatosis [Unknown]
  - Xerophthalmia [Not Recovered/Not Resolved]
  - Joint contracture [Unknown]
  - Musculoskeletal stiffness [Unknown]
  - Dry mouth [Not Recovered/Not Resolved]
  - Hand deformity [Unknown]
  - Joint swelling [Unknown]
  - Blood calcium increased [Unknown]
  - Glomerular filtration rate decreased [Unknown]
  - Blood potassium increased [Unknown]
  - Arthralgia [Unknown]

NARRATIVE: CASE EVENT DATE: 20170321
